FAERS Safety Report 8557251-4 (Version None)
Quarter: 2012Q3

REPORT INFORMATION
  Report Type: 
  Country: None (occurrence: None)
  Receive Date: 20120726
  Receipt Date: 20120726
  Transmission Date: 20120928
  Serious: No
  Sender: FDA-Public Use
  Company Number: None

PATIENT
  Sex: Female
  Weight: 66.8 kg

DRUGS (1)
  1. AVONEX [Suspect]
     Indication: MULTIPLE SCLEROSIS
     Dosage: 1/4, 1/2/3/4/FULL DOSE (TITRATE) WK 1,2,3,4 (TITRATE) IM
     Route: 030
     Dates: start: 20120720

REACTIONS (1)
  - MATERNAL EXPOSURE DURING PREGNANCY [None]
